FAERS Safety Report 24380576 (Version 2)
Quarter: 2024Q4

REPORT INFORMATION
  Report Type: Spontaneous
  Country: AU (occurrence: AU)
  Receive Date: 20240930
  Receipt Date: 20241025
  Transmission Date: 20250114
  Serious: Yes (Death, Other)
  Sender: GILEAD
  Company Number: AU-GLAXOSMITHKLINE-AU2024APC118003

PATIENT
  Age: 85 Year
  Sex: Female

DRUGS (2)
  1. AMBRISENTAN [Suspect]
     Active Substance: AMBRISENTAN
     Indication: Pulmonary arterial hypertension
     Dosage: 40 MG, QD (IN MORNING)
     Route: 048
     Dates: start: 20201215
  2. TADALAFIL [Concomitant]
     Active Substance: TADALAFIL
     Indication: Product used for unknown indication
     Dosage: UNK
     Route: 048

REACTIONS (2)
  - Cardiac failure [Fatal]
  - Extra dose administered [Unknown]
